FAERS Safety Report 26007526 (Version 2)
Quarter: 2025Q4

REPORT INFORMATION
  Report Type: Report from Study
  Country: EU (occurrence: EU)
  Receive Date: 20251106
  Receipt Date: 20251225
  Transmission Date: 20260117
  Serious: Yes (Death)
  Sender: ABBVIE
  Company Number: EU-JNJFOC-20251040601

PATIENT
  Age: 82 Year
  Sex: Female
  Weight: 79.8 kg

DRUGS (1)
  1. IMBRUVICA [Suspect]
     Active Substance: IBRUTINIB
     Indication: Mantle cell lymphoma
     Route: 048
     Dates: start: 20221207, end: 20250117

REACTIONS (1)
  - Mantle cell lymphoma [Fatal]
